FAERS Safety Report 7596391-3 (Version None)
Quarter: 2011Q3

REPORT INFORMATION
  Report Type: 
  Country: None (occurrence: None)
  Receive Date: 20110707
  Receipt Date: 20110628
  Transmission Date: 20111222
  Serious: Yes (Hospitalization, Other)
  Sender: FDA-Public Use
  Company Number: US-MERCK-1104USA02223

PATIENT
  Age: 49 Year
  Sex: Female

DRUGS (9)
  1. FOSAMAX PLUS D [Suspect]
     Indication: OSTEOPOROSIS
     Route: 048
  2. ONE-A-DAY ESSENTIAL VITAMINS [Concomitant]
     Route: 065
  3. PREVACID [Concomitant]
     Route: 065
     Dates: start: 20060101
  4. CORTICOSTEROIDS (UNSPECIFIED) [Concomitant]
     Route: 065
     Dates: start: 20100101
  5. FOSAMAX [Suspect]
     Indication: OSTEOPOROSIS
     Route: 048
     Dates: start: 19970918, end: 20100101
  6. FOSAMAX [Suspect]
     Route: 048
  7. PRILOSEC [Concomitant]
     Route: 065
     Dates: start: 20060101
  8. NEXIUM [Concomitant]
     Route: 065
     Dates: start: 20080101
  9. HORMONES (UNSPECIFIED) [Concomitant]
     Route: 065

REACTIONS (19)
  - ARTHROPATHY [None]
  - NECROSIS [None]
  - DYSPEPSIA [None]
  - FRACTURE [None]
  - ANXIETY [None]
  - BARRETT'S OESOPHAGUS [None]
  - DEPRESSION [None]
  - IMPAIRED HEALING [None]
  - NEPHROLITHIASIS [None]
  - HYPERTENSION [None]
  - SLEEP DISORDER [None]
  - HEART RATE INCREASED [None]
  - STRESS FRACTURE [None]
  - BLOOD CHOLESTEROL INCREASED [None]
  - PAIN IN JAW [None]
  - PAIN [None]
  - DIABETES MELLITUS [None]
  - FEMUR FRACTURE [None]
  - GASTROOESOPHAGEAL REFLUX DISEASE [None]
